FAERS Safety Report 6147725-8 (Version None)
Quarter: 2009Q2

REPORT INFORMATION
  Report Type: 
  Country: None (occurrence: None)
  Receive Date: 20090408
  Receipt Date: 20090331
  Transmission Date: 20091009
  Serious: Yes (Hospitalization)
  Sender: FDA-Public Use
  Company Number: CA-AMGEN-QUU341175

PATIENT
  Sex: Female

DRUGS (7)
  1. ENBREL [Suspect]
     Indication: RHEUMATOID ARTHRITIS
     Route: 058
     Dates: start: 20080101
  2. CRESTOR [Concomitant]
  3. NORVASC [Concomitant]
  4. PARIET [Concomitant]
  5. CELEXA [Concomitant]
  6. LEFLUNOMIDE [Concomitant]
  7. ATACAND [Concomitant]

REACTIONS (2)
  - MITRAL VALVE REPLACEMENT [None]
  - TRICUSPID VALVE REPAIR [None]
